FAERS Safety Report 24183738 (Version 3)
Quarter: 2024Q3

REPORT INFORMATION
  Report Type: Report from Study
  Country: JP (occurrence: JP)
  Receive Date: 20240807
  Receipt Date: 20240904
  Transmission Date: 20241017
  Serious: Yes (Life-Threatening, Hospitalization)
  Sender: PFIZER
  Company Number: JP-PFIZER INC-PV202400101476

PATIENT
  Age: 43 Year
  Sex: Male
  Weight: 74 kg

DRUGS (12)
  1. CIBINQO [Suspect]
     Active Substance: ABROCITINIB
     Indication: Dermatitis atopic
     Dosage: 100 MG, 1X/DAY
     Dates: start: 20231026, end: 20231115
  2. CIBINQO [Suspect]
     Active Substance: ABROCITINIB
     Dosage: 100 MG ONCE DAILY ALTERNATIVE DAY
     Dates: start: 20231116, end: 20240313
  3. CIBINQO [Suspect]
     Active Substance: ABROCITINIB
     Dosage: 100 MG, 1X/DAY
     Dates: start: 20240314, end: 20240723
  4. XYZAL [Suspect]
     Active Substance: LEVOCETIRIZINE DIHYDROCHLORIDE
     Indication: Dermatitis atopic
     Dosage: 10 MG, DAILY
     Route: 048
     Dates: start: 20220921, end: 20240725
  5. ALLEGRA [Concomitant]
     Active Substance: FEXOFENADINE HYDROCHLORIDE
     Indication: Dermatitis atopic
     Dosage: 120 MG, DAILY
     Route: 048
     Dates: start: 20240215
  6. PREDNISOLONE ACETATE [Concomitant]
     Active Substance: PREDNISOLONE ACETATE
     Dosage: 0.2 G, DAILY
     Route: 061
     Dates: start: 20240111
  7. MYSER [DIFLUPREDNATE] [Concomitant]
     Dosage: 2 G, DAILY
     Route: 061
  8. HEPARINOID [Concomitant]
     Dosage: 5 G, DAILY
     Route: 061
  9. LOCOID [Concomitant]
     Active Substance: HYDROCORTISONE BUTYRATE
     Dosage: 0.3 G, DAILY
     Route: 061
  10. PROTOPIC [Concomitant]
     Active Substance: TACROLIMUS
     Dosage: 0.2 G, DAILY
     Route: 061
     Dates: start: 20240215
  11. FLUOROMETHOLONE [Concomitant]
     Active Substance: FLUOROMETHOLONE
     Dosage: 0.2 ML, DAILY
     Route: 047
  12. EPINASTINE HYDROCHLORIDE [Concomitant]
     Active Substance: EPINASTINE HYDROCHLORIDE
     Dosage: 0.2 ML, DAILY
     Route: 047

REACTIONS (1)
  - Atrioventricular block [Recovered/Resolved]

NARRATIVE: CASE EVENT DATE: 20240723
